FAERS Safety Report 13735358 (Version 1)
Quarter: 2017Q3

REPORT INFORMATION
  Report Type: Spontaneous
  Country: US (occurrence: US)
  Receive Date: 20170709
  Receipt Date: 20170709
  Transmission Date: 20171127
  Serious: No
  Sender: FDA-Public Use
  Company Number: None

PATIENT
  Age: 70 Year
  Sex: Male
  Weight: 67.5 kg

DRUGS (1)
  1. ECONAZOLE [Suspect]
     Active Substance: ECONAZOLE
     Indication: TINEA CRURIS
     Route: 061
     Dates: start: 20140403, end: 20140427

REACTIONS (4)
  - Rash macular [None]
  - Angiokeratoma [None]
  - Haemorrhage [None]
  - Skin irritation [None]

NARRATIVE: CASE EVENT DATE: 20140427
